FAERS Safety Report 8256495-9 (Version None)
Quarter: 2012Q2

REPORT INFORMATION
  Report Type: 
  Country: None (occurrence: None)
  Receive Date: 20120403
  Receipt Date: 20120327
  Transmission Date: 20120825
  Serious: Yes (Other)
  Sender: FDA-Public Use
  Company Number: PHHY2012US026810

PATIENT
  Age: 76 Year
  Sex: Female

DRUGS (2)
  1. ASPIRIN [Suspect]
     Indication: PAIN
     Dosage: 3 DF, BID
     Route: 048
  2. STELAZINE [Concomitant]

REACTIONS (7)
  - CARPAL TUNNEL SYNDROME [None]
  - ARTHRITIS [None]
  - SOMNOLENCE [None]
  - INCORRECT DRUG ADMINISTRATION DURATION [None]
  - WEIGHT DECREASED [None]
  - SLEEP DISORDER [None]
  - INCORRECT DOSE ADMINISTERED [None]
